FAERS Safety Report 23064658 (Version 2)
Quarter: 2024Q2

REPORT INFORMATION
  Report Type: Spontaneous
  Country: JP (occurrence: JP)
  Receive Date: 20231013
  Receipt Date: 20240611
  Transmission Date: 20240716
  Serious: Yes (Hospitalization, Other)
  Sender: FDA-Public Use
  Company Number: JP-SUN PHARMACEUTICAL INDUSTRIES LTD-2023R1-412365

PATIENT
  Age: 71 Year
  Sex: Female
  Weight: 55.3 kg

DRUGS (1)
  1. LITHIUM [Suspect]
     Active Substance: LITHIUM
     Indication: Bipolar disorder
     Dosage: 600 MILLIGRAM, DAILY
     Route: 065

REACTIONS (2)
  - Nephrogenic diabetes insipidus [Recovering/Resolving]
  - Polyuria [Recovering/Resolving]
